FAERS Safety Report 18014914 (Version 1)
Quarter: 2020Q3

REPORT INFORMATION
  Report Type: Spontaneous
  Country: US (occurrence: US)
  Receive Date: 20200713
  Receipt Date: 20200713
  Transmission Date: 20201103
  Serious: No
  Sender: FDA-Public Use
  Company Number: US-BAYER-2020-140732

PATIENT
  Sex: Female

DRUGS (1)
  1. MIRENA [Suspect]
     Active Substance: LEVONORGESTREL
     Dosage: 20 ?G PER DAY CONTINUOUSLY
     Route: 015
     Dates: start: 20200708

REACTIONS (6)
  - Procedural pain [Not Recovered/Not Resolved]
  - Procedural vomiting [None]
  - Menorrhagia [None]
  - Procedural dizziness [None]
  - Cold sweat [None]
  - Nausea [None]

NARRATIVE: CASE EVENT DATE: 20200708
